FAERS Safety Report 9254725 (Version 1)
Quarter: 2013Q2

REPORT INFORMATION
  Report Type: Spontaneous
  Country: US (occurrence: None)
  Receive Date: 20130422
  Receipt Date: 20130422
  Transmission Date: 20140414
  Serious: Yes (Other)
  Sender: FDA-Public Use
  Company Number: None

PATIENT
  Age: 67 Year
  Sex: Female

DRUGS (1)
  1. FORTEO [Suspect]
     Indication: OSTEOPOROSIS
     Dosage: 20 MEQ  DAILY  SQ?USED TWICE
     Route: 058

REACTIONS (4)
  - Dizziness [None]
  - Malaise [None]
  - Asthenia [None]
  - Nausea [None]
